FAERS Safety Report 5583873-9 (Version None)
Quarter: 2008Q1

REPORT INFORMATION
  Report Type: 
  Country: None (occurrence: None)
  Receive Date: 20080102
  Receipt Date: 20080102
  Transmission Date: 20080703
  Serious: Yes (Other)
  Sender: FDA-Public Use
  Company Number: None

PATIENT
  Age: 47 Year
  Sex: Female
  Weight: 45.3597 kg

DRUGS (2)
  1. LAMICTAL [Suspect]
     Indication: ANXIETY
     Dosage: 4 A DAY
     Dates: start: 20071001, end: 20071201
  2. LAMICTAL [Suspect]
     Indication: NERVOUSNESS
     Dosage: 4 A DAY
     Dates: start: 20071001, end: 20071201

REACTIONS (7)
  - ALOPECIA AREATA [None]
  - AMNESIA [None]
  - BALANCE DISORDER [None]
  - DISORIENTATION [None]
  - LOSS OF CONSCIOUSNESS [None]
  - NAIL DISORDER [None]
  - WEIGHT DECREASED [None]
